FAERS Safety Report 6629664-9 (Version None)
Quarter: 2010Q1

REPORT INFORMATION
  Report Type: 
  Country: None (occurrence: None)
  Receive Date: 20100311
  Receipt Date: 20100303
  Transmission Date: 20100710
  Serious: Yes (Death)
  Sender: FDA-Public Use
  Company Number: US-GILEAD-2010-0027460

PATIENT
  Sex: Female
  Weight: 60.836 kg

DRUGS (11)
  1. LETAIRIS [Suspect]
     Indication: PULMONARY ARTERIAL HYPERTENSION
     Dates: start: 20090730, end: 20100228
  2. SPIRONOLACTONE [Concomitant]
  3. FUROSEMIDE [Concomitant]
  4. ASPIRIN [Concomitant]
  5. FERROUS SULFATE TAB [Concomitant]
  6. LORAZEPAM [Concomitant]
  7. VICODIN [Concomitant]
  8. MINOXIDIL [Concomitant]
  9. MULTI-VITAMINS [Concomitant]
  10. CALCIUM [Concomitant]
  11. POTASSIUM [Concomitant]

REACTIONS (1)
  - ROAD TRAFFIC ACCIDENT [None]
